FAERS Safety Report 16722774 (Version 2)
Quarter: 2019Q3

REPORT INFORMATION
  Report Type: Report from Study
  Country: US (occurrence: US)
  Receive Date: 20190821
  Receipt Date: 20190925
  Transmission Date: 20191005
  Serious: Yes (Life-Threatening, Hospitalization, Other)
  Sender: FDA-Public Use
  Company Number: US-AMGEN-USASL2019072752

PATIENT
  Age: 33 Year
  Sex: Male
  Weight: 93.88 kg

DRUGS (3)
  1. ENBREL [Suspect]
     Active Substance: ETANERCEPT
     Indication: RHEUMATOID ARTHRITIS
     Dosage: 50 MILLIGRAM, QWK
     Route: 058
  2. METHOTREXATE. [Concomitant]
     Active Substance: METHOTREXATE
     Indication: PSORIATIC ARTHROPATHY
     Dosage: 20 MILLIGRAM, QWK
     Dates: start: 2016, end: 20190623
  3. REUSABLE AUTOINJECTOR [Suspect]
     Active Substance: DEVICE
     Indication: PSORIATIC ARTHROPATHY
     Dosage: 50 MILLIGRAM, QWK
     Route: 058
     Dates: start: 20190425

REACTIONS (11)
  - Respiratory failure [Recovered/Resolved]
  - Meniere^s disease [Unknown]
  - Injection site pain [Unknown]
  - Anxiety [Unknown]
  - Arthropathy [Unknown]
  - Ear pain [Unknown]
  - Pain in jaw [Unknown]
  - Pneumonia [Recovered/Resolved]
  - Swelling face [Recovered/Resolved]
  - Mental disorder [Unknown]
  - Temporomandibular joint syndrome [Unknown]

NARRATIVE: CASE EVENT DATE: 2019
